FAERS Safety Report 7942578-7 (Version None)
Quarter: 2011Q4

REPORT INFORMATION
  Report Type: 
  Country: None (occurrence: None)
  Receive Date: 20111128
  Receipt Date: 20111117
  Transmission Date: 20120403
  Serious: Yes (Death)
  Sender: FDA-Public Use
  Company Number: US-VIIV HEALTHCARE LIMITED-B0765118A

PATIENT
  Age: 41 Year
  Sex: Male
  Weight: 77.7 kg

DRUGS (13)
  1. ALPRAZOLAM [Concomitant]
     Dates: start: 20070313
  2. LORATADINE [Concomitant]
     Dates: start: 20110922
  3. MARAVIROC [Suspect]
     Indication: HIV INFECTION
     Dosage: 300MG TWICE PER DAY
     Route: 048
     Dates: start: 20101007, end: 20111114
  4. AMITRIPTYLINE HCL [Concomitant]
     Dates: start: 20101007
  5. LEXAPRO [Concomitant]
     Dates: start: 20070215
  6. TRUVADA [Concomitant]
     Indication: HIV INFECTION
     Dosage: 1TAB PER DAY
     Dates: start: 20101007, end: 20111114
  7. OXYCODONE HCL [Concomitant]
     Dates: start: 20100913
  8. CLONAZEPAM [Concomitant]
     Dates: start: 20070410
  9. TOPAMAX [Concomitant]
     Dates: start: 20111021
  10. FIORICET [Concomitant]
     Dates: start: 20110922
  11. VITAMIN D2 [Concomitant]
     Dates: start: 20111021
  12. CORTISPORIN [Concomitant]
     Dates: start: 20101007
  13. LOMOTIL [Concomitant]
     Dates: start: 20100101

REACTIONS (1)
  - DEATH [None]
